FAERS Safety Report 18607568 (Version 3)
Quarter: 2021Q1

REPORT INFORMATION
  Report Type: Spontaneous
  Country: DK (occurrence: DK)
  Receive Date: 20201211
  Receipt Date: 20210203
  Transmission Date: 20210419
  Serious: Yes (Death, Hospitalization, Other)
  Sender: FDA-Public Use
  Company Number: DK-ELI_LILLY_AND_COMPANY-DK202012001828

PATIENT
  Age: 71 Year
  Sex: Male

DRUGS (3)
  1. KEYTRUDA [Suspect]
     Active Substance: PEMBROLIZUMAB
     Indication: NON-SMALL CELL LUNG CANCER
     Dosage: UNK, UNKNOWN
     Route: 065
  2. PEMETREXED. [Suspect]
     Active Substance: PEMETREXED
     Indication: NON-SMALL CELL LUNG CANCER
     Dosage: UNK UNK, CYCLICAL
     Route: 065
  3. CARBOPLATIN. [Suspect]
     Active Substance: CARBOPLATIN
     Indication: NON-SMALL CELL LUNG CANCER
     Dosage: UNK UNK, CYCLICAL
     Route: 065

REACTIONS (15)
  - Lichen planus [Fatal]
  - Malignant neoplasm progression [Fatal]
  - Off label use [Unknown]
  - Diarrhoea [Fatal]
  - Nausea [Fatal]
  - Rash [Fatal]
  - Exfoliative rash [Fatal]
  - Systemic lupus erythematosus [Fatal]
  - Hepatic function abnormal [Fatal]
  - Eczema [Fatal]
  - Skin toxicity [Fatal]
  - Sudden death [Fatal]
  - Neutropenia [Fatal]
  - Dermatitis exfoliative [Fatal]
  - Dermatomyositis [Fatal]
